FAERS Safety Report 8796780 (Version 2)
Quarter: 2012Q4

REPORT INFORMATION
  Report Type: 
  Country: AU (occurrence: AU)
  Receive Date: 20120919
  Receipt Date: 20121218
  Transmission Date: 20130627
  Serious: Yes (Death)
  Sender: FDA-Public Use
  Company Number: AU-009507513-1209AUS005791

PATIENT
  Sex: Male

DRUGS (1)
  1. TEMODAL [Suspect]

REACTIONS (1)
  - Disease progression [Fatal]
